FAERS Safety Report 7357980-4 (Version None)
Quarter: 2011Q1

REPORT INFORMATION
  Report Type: 
  Country: None (occurrence: None)
  Receive Date: 20110317
  Receipt Date: 20110303
  Transmission Date: 20110831
  Serious: Yes (Hospitalization, Other)
  Sender: FDA-Public Use
  Company Number: PHHY2011BE14363

PATIENT
  Sex: Female

DRUGS (13)
  1. LASIX [Concomitant]
     Indication: HYPERTENSION
  2. ALDACTONE [Concomitant]
     Indication: HYPERTENSION
  3. SYMBICORT [Concomitant]
     Indication: RESPIRATORY DISORDER
  4. ALPHAGAN [Concomitant]
     Indication: GLAUCOMA
  5. OXYGEN THERAPY [Concomitant]
  6. DRUGS FOR OBSTRUCTIVE AIRWAY DISEASES [Concomitant]
  7. ANTI-PARKINSON DRUGS [Concomitant]
  8. MESALAPHAR [Concomitant]
     Indication: CROHN'S DISEASE
  9. DIOVAN [Suspect]
     Indication: HYPERTENSION
     Dosage: 160 MG, QD
  10. MIRAPEXIN [Concomitant]
     Indication: PARKINSON'S DISEASE
     Dosage: UNK
  11. SINTROM [Concomitant]
  12. PROLOPA [Concomitant]
     Indication: PARKINSON'S DISEASE
  13. XALATAN [Concomitant]
     Indication: GLAUCOMA

REACTIONS (6)
  - PNEUMONIA [None]
  - DIZZINESS [None]
  - DRUG INEFFECTIVE [None]
  - BLOOD PRESSURE INADEQUATELY CONTROLLED [None]
  - HYPOTENSION [None]
  - MEDICATION RESIDUE [None]
